FAERS Safety Report 18782089 (Version 1)
Quarter: 2021Q1

REPORT INFORMATION
  Report Type: Spontaneous
  Country: US (occurrence: US)
  Receive Date: 20210125
  Receipt Date: 20210125
  Transmission Date: 20210419
  Serious: Yes (Hospitalization)
  Sender: FDA-Public Use
  Company Number: None

PATIENT
  Age: 74 Year
  Sex: Male
  Weight: 61 kg

DRUGS (9)
  1. AZITHROMYCIN ANHYDROUS. [Concomitant]
     Active Substance: AZITHROMYCIN ANHYDROUS
     Dates: start: 20210121, end: 20210121
  2. BAMLANIVIMAB. [Suspect]
     Active Substance: BAMLANIVIMAB
     Indication: COVID-19
     Dosage: ?          OTHER FREQUENCY:ONCE;?
     Route: 041
     Dates: start: 20210121, end: 20210121
  3. ADENOSINE. [Concomitant]
     Active Substance: ADENOSINE
     Dates: start: 20210121, end: 20210121
  4. CARDIZEM [Concomitant]
     Active Substance: DILTIAZEM HYDROCHLORIDE
     Dates: start: 20210121, end: 20210121
  5. ACETAMINOPHEN. [Concomitant]
     Active Substance: ACETAMINOPHEN
     Dates: start: 20210121, end: 20210121
  6. CEFTRIAXONE. [Concomitant]
     Active Substance: CEFTRIAXONE
     Dates: start: 20210121
  7. IOPAMIDOL [Concomitant]
     Active Substance: IOPAMIDOL
     Dates: start: 20210121, end: 20210121
  8. LOVENOX [Concomitant]
     Active Substance: ENOXAPARIN SODIUM
     Dates: start: 20210121
  9. MG SULFATE [Concomitant]
     Active Substance: MAGNESIUM SULFATE
     Dates: start: 20210121, end: 20210121

REACTIONS (3)
  - Atrial fibrillation [None]
  - Asthenia [None]
  - Oxygen saturation decreased [None]

NARRATIVE: CASE EVENT DATE: 20210121
